FAERS Safety Report 10045544 (Version 1)
Quarter: 2014Q1

REPORT INFORMATION
  Report Type: Spontaneous
  Country: US (occurrence: US)
  Receive Date: 20140328
  Receipt Date: 20140328
  Transmission Date: 20141002
  Serious: No
  Sender: FDA-Public Use
  Company Number: US-PFIZER INC-2014085975

PATIENT
  Age: 72 Year
  Sex: Female

DRUGS (2)
  1. DETROL LA [Suspect]
     Dosage: UNK
  2. COUMADINE [Interacting]
     Dosage: 5 MG, UNK (TAKE AS DIRECTED BY COUMADIN CLINIC)

REACTIONS (1)
  - Drug interaction [Unknown]
